FAERS Safety Report 6651571-6 (Version None)
Quarter: 2010Q1

REPORT INFORMATION
  Report Type: 
  Country: None (occurrence: None)
  Receive Date: 20100325
  Receipt Date: 20100226
  Transmission Date: 20100710
  Serious: Yes (Other)
  Sender: FDA-Public Use
  Company Number: B0642632A

PATIENT
  Sex: Female

DRUGS (4)
  1. SALBUTAMOL [Suspect]
     Indication: ASTHMATIC CRISIS
     Dosage: 2PUFF THREE TIMES PER DAY
     Route: 055
     Dates: start: 20090828, end: 20090901
  2. DILTIAZEM [Concomitant]
     Route: 048
  3. LANSOPRAZOLE [Concomitant]
     Indication: GASTRIC ULCER
     Route: 048
  4. DAFALGAN [Concomitant]
     Indication: PAIN
     Route: 048

REACTIONS (2)
  - DYSGEUSIA [None]
  - NAUSEA [None]
